FAERS Safety Report 4893371-3 (Version None)
Quarter: 2006Q1

REPORT INFORMATION
  Report Type: 
  Country: None (occurrence: None)
  Receive Date: 20060125
  Receipt Date: 20060125
  Transmission Date: 20060701
  Serious: Yes (Life-Threatening, Hospitalization)
  Sender: FDA-Public Use
  Company Number: None

PATIENT

DRUGS (2)
  1. TOPOTECAN [Suspect]
     Dosage: SC
     Route: 058
  2. RADIATION THERAPY [Suspect]

REACTIONS (4)
  - BALANCE DISORDER [None]
  - BRAIN STEM SYNDROME [None]
  - SOMNOLENCE [None]
  - TUMOUR HAEMORRHAGE [None]
